FAERS Safety Report 10458650 (Version 2)
Quarter: 2014Q3

REPORT INFORMATION
  Report Type: Spontaneous
  Country: SE (occurrence: None)
  Receive Date: 20140915
  Receipt Date: 20140915
  Transmission Date: 20150326
  Serious: Yes (Hospitalization)
  Sender: FDA-Public Use
  Company Number: 2516860

PATIENT
  Age: 78 Year
  Sex: Female
  Weight: 87 kg

DRUGS (4)
  1. KETOBEMIDONE [Concomitant]
     Active Substance: KETOBEMIDONE
  2. AMOXICILLIN CLAVULANIC ACID [Concomitant]
     Active Substance: AMOXICILLIN\CLAVULANIC ACID
  3. DEXMEDETOMIDINE HYDROCHLORIDE [Suspect]
     Active Substance: DEXMEDETOMIDINE HYDROCHLORIDE
     Indication: PRODUCT USED FOR UNKNOWN INDICATION
     Dosage: ACCULMALATED DOSE
     Route: 042
     Dates: start: 20140102
  4. CEFUROXIME. [Concomitant]
     Active Substance: CEFUROXIME

REACTIONS (1)
  - Pneumonia [None]

NARRATIVE: CASE EVENT DATE: 20140129
